FAERS Safety Report 13839116 (Version 10)
Quarter: 2019Q3

REPORT INFORMATION
  Report Type: Spontaneous
  Country: US (occurrence: US)
  Receive Date: 20170807
  Receipt Date: 20190919
  Transmission Date: 20191004
  Serious: Yes (Other)
  Sender: FDA-Public Use
  Company Number: PHEH2017US024652

PATIENT
  Sex: Female

DRUGS (2)
  1. ZOFRAN [Suspect]
     Active Substance: ONDANSETRON HYDROCHLORIDE
     Indication: PRODUCT USED FOR UNKNOWN INDICATION
     Dosage: 08 MG, BID
     Route: 048
  2. ZOFRAN ODT [Suspect]
     Active Substance: ONDANSETRON HYDROCHLORIDE
     Indication: MORNING SICKNESS
     Dosage: 8 MG, PRN
     Route: 048
     Dates: start: 20030418, end: 20031024

REACTIONS (24)
  - Impetigo [Unknown]
  - Sinus congestion [Unknown]
  - Arrhythmia [Unknown]
  - Hypermetropia [Unknown]
  - Tubulointerstitial nephritis [Unknown]
  - Upper respiratory tract infection [Unknown]
  - Cough [Unknown]
  - Injury [Unknown]
  - Emotional distress [Unknown]
  - Upper-airway cough syndrome [Unknown]
  - Product use in unapproved indication [Unknown]
  - Brain compression [Unknown]
  - Diverticulitis [Unknown]
  - Hypertensive heart disease [Unknown]
  - Dehydration [Unknown]
  - Skin cancer [Unknown]
  - Maternal exposure during pregnancy [Unknown]
  - Skin hypertrophy [Unknown]
  - Dermatitis atopic [Unknown]
  - Atrophic vulvovaginitis [Unknown]
  - Pharyngitis [Unknown]
  - Urinary tract infection [Unknown]
  - Mixed incontinence [Unknown]
  - Ear discomfort [Unknown]
